FAERS Safety Report 9900969 (Version 1)
Quarter: 2014Q1

REPORT INFORMATION
  Report Type: Report from Study
  Country: US (occurrence: US)
  Receive Date: 20140217
  Receipt Date: 20140217
  Transmission Date: 20141002
  Serious: No
  Sender: FDA-Public Use
  Company Number: US-ABBVIE-13P-163-1123429-00

PATIENT
  Sex: Male

DRUGS (1)
  1. SIMCOR 500/20 [Suspect]
     Indication: PRODUCT USED FOR UNKNOWN INDICATION
     Dosage: 500/20 MG DAILY
     Dates: start: 201304

REACTIONS (2)
  - Myalgia [Recovered/Resolved]
  - Medication error [Unknown]
